FAERS Safety Report 9113299 (Version 1)
Quarter: 2013Q1

REPORT INFORMATION
  Report Type: Report from Study
  Country: AU (occurrence: AU)
  Receive Date: 20130211
  Receipt Date: 20130211
  Transmission Date: 20140127
  Serious: Yes (Hospitalization, Other)
  Sender: FDA-Public Use
  Company Number: AU-ASTRAZENECA-2013SE07522

PATIENT
  Age: 0 Day
  Sex: Female
  Weight: 3.2 kg

DRUGS (6)
  1. SEROQUEL XR [Suspect]
     Indication: PSYCHOTIC DISORDER
     Dosage: 100 MG/DAY INITIATED PRE-PREGNANCY
     Route: 064
  2. NIFEDIPINE [Concomitant]
     Indication: HYPERTENSION
     Dosage: 30 MG/DAY INITIATED PRE-PREGNANCY
     Route: 064
  3. ASPIRIN [Concomitant]
     Indication: ANTICOAGULANT THERAPY
     Dosage: 100 MG/DAY INITIATED SINCE 1 TRIMESTER
     Route: 064
     Dates: end: 20121114
  4. ELEVIT [Concomitant]
     Indication: VITAMIN SUPPLEMENTATION
     Dosage: 1 TABLET/DAY, INITIATED SINCE 1 TRIMESTER
     Route: 064
     Dates: end: 20121114
  5. FOLATE [Concomitant]
     Indication: PROPHYLAXIS OF NEURAL TUBE DEFECT
     Dosage: 5 MG/DAY, INITIATED AT 1 TRIMESTER
     Route: 064
     Dates: end: 20121114
  6. CALTRATE [Concomitant]
     Indication: MINERAL SUPPLEMENTATION
     Dosage: 600 MG/DAY, INITIATED AT 1 TRIMESTER
     Route: 064
     Dates: end: 20121114

REACTIONS (1)
  - Drug withdrawal syndrome neonatal [Not Recovered/Not Resolved]
